FAERS Safety Report 5766671-2 (Version None)
Quarter: 2008Q2

REPORT INFORMATION
  Report Type: 
  Country: None (occurrence: None)
  Receive Date: 20080612
  Receipt Date: 20080530
  Transmission Date: 20081010
  Serious: Yes (Hospitalization)
  Sender: FDA-Public Use
  Company Number: ES-NOVOPROD-275847

PATIENT
  Age: 72 Year
  Sex: Female

DRUGS (5)
  1. REPAGLINIDE [Suspect]
     Indication: TYPE 2 DIABETES MELLITUS
  2. CITALOPRAM HYDROBROMIDE [Concomitant]
     Indication: DEPRESSION
     Dates: start: 20080101, end: 20080326
  3. ENALAPRIL MALEATO [Concomitant]
     Indication: HYPERTENSION
  4. ATORVASTATINA [Concomitant]
     Indication: CARDIAC DISORDER
  5. CONDROITINA [Concomitant]
     Indication: OSTEOARTHRITIS
     Dates: start: 20080101, end: 20080320

REACTIONS (1)
  - CHOLESTASIS [None]
